FAERS Safety Report 17425799 (Version 1)
Quarter: 2020Q1

REPORT INFORMATION
  Report Type: Report from Study
  Country: US (occurrence: US)
  Receive Date: 20200217
  Receipt Date: 20200217
  Transmission Date: 20200409
  Serious: No
  Sender: FDA-Public Use
  Company Number: NVSC2020US017177

PATIENT
  Sex: Male

DRUGS (1)
  1. ENTRESTO [Suspect]
     Active Substance: SACUBITRIL\VALSARTAN
     Indication: CARDIAC FAILURE
     Dosage: 100 MG(49 MG SACUBITRIL/51 MG VALSARTAN), BID
     Route: 048
     Dates: start: 201810

REACTIONS (1)
  - Cough [Unknown]

NARRATIVE: CASE EVENT DATE: 2019
